FAERS Safety Report 7658502-0 (Version None)
Quarter: 2011Q3

REPORT INFORMATION
  Report Type: 
  Country: None (occurrence: None)
  Receive Date: 20110805
  Receipt Date: 20110804
  Transmission Date: 20111222
  Serious: Yes (Other)
  Sender: FDA-Public Use
  Company Number: US-GILEAD-2011-0042615

PATIENT
  Sex: Female

DRUGS (4)
  1. KLONOPIN [Concomitant]
  2. BUSPAR [Concomitant]
  3. LEXAPRO [Concomitant]
  4. LETAIRIS [Suspect]
     Indication: PRODUCT USED FOR UNKNOWN INDICATION
     Route: 048

REACTIONS (5)
  - DEPRESSION [None]
  - PSYCHIATRIC SYMPTOM [None]
  - CARDIAC FAILURE CONGESTIVE [None]
  - DRUG INTERACTION [None]
  - OEDEMA [None]
